FAERS Safety Report 12804505 (Version 2)
Quarter: 2016Q4

REPORT INFORMATION
  Report Type: Spontaneous
  Country: US (occurrence: US)
  Receive Date: 20161003
  Receipt Date: 20161012
  Transmission Date: 20170207
  Serious: Yes (Other)
  Sender: FDA-Public Use
  Company Number: US-PFIZER INC-2016461302

PATIENT
  Sex: Female

DRUGS (1)
  1. LYRICA [Suspect]
     Active Substance: PREGABALIN
     Indication: DIABETIC NEUROPATHY
     Dosage: 50 MG, UNK

REACTIONS (14)
  - Underdose [Unknown]
  - Constipation [Unknown]
  - Logorrhoea [Unknown]
  - Irritability [Unknown]
  - Suicidal ideation [Unknown]
  - Hallucination [Unknown]
  - Anger [Unknown]
  - Anxiety [Unknown]
  - Burning sensation [Unknown]
  - Weight increased [Unknown]
  - Activities of daily living impaired [Unknown]
  - Vision blurred [Unknown]
  - Feeling hot [Unknown]
  - Blood glucose increased [Unknown]
